FAERS Safety Report 7178352-1 (Version None)
Quarter: 2010Q4

REPORT INFORMATION
  Report Type: 
  Country: None (occurrence: None)
  Receive Date: 20101220
  Receipt Date: 20101208
  Transmission Date: 20110411
  Serious: Yes (Hospitalization)
  Sender: FDA-Public Use
  Company Number: US-PFIZER INC-US-WYE-H15800610

PATIENT
  Age: 63 Year
  Sex: Male
  Weight: 64.1 kg

DRUGS (2)
  1. TORISEL [Suspect]
     Indication: RENAL CELL CARCINOMA
     Dosage: 25 MG,DAYS 1,8,15, AND 22
     Route: 042
     Dates: start: 20100112, end: 20100511
  2. AVASTIN [Suspect]
     Indication: RENAL CELL CARCINOMA
     Dosage: 10 MG/KG, DAYS 1 AND 15
     Route: 042
     Dates: start: 20100112

REACTIONS (6)
  - ABDOMINAL ABSCESS [None]
  - ABDOMINAL PAIN [None]
  - DECREASED APPETITE [None]
  - DEHYDRATION [None]
  - OPPORTUNISTIC INFECTION PROPHYLAXIS [None]
  - STAPHYLOCOCCAL INFECTION [None]
